FAERS Safety Report 12988169 (Version 1)
Quarter: 2016Q4

REPORT INFORMATION
  Report Type: Spontaneous
  Country: US (occurrence: US)
  Receive Date: 20161130
  Receipt Date: 20161130
  Transmission Date: 20170207
  Serious: Yes (Hospitalization)
  Sender: FDA-Public Use
  Company Number: US-RELYPSA-RLY2016003885

PATIENT
  Age: 73 Year
  Sex: Female

DRUGS (30)
  1. BIOTIN [Concomitant]
     Active Substance: BIOTIN
  2. MIDODRINE HCL [Concomitant]
     Active Substance: MIDODRINE HYDROCHLORIDE
  3. NOVOLOG [Concomitant]
     Active Substance: INSULIN ASPART
  4. QVAR [Concomitant]
     Active Substance: BECLOMETHASONE DIPROPIONATE
  5. RENVELA [Concomitant]
     Active Substance: SEVELAMER CARBONATE
  6. BUPIVACAINE HCL [Concomitant]
     Active Substance: BUPIVACAINE HYDROCHLORIDE
  7. MELATONIN [Concomitant]
     Active Substance: MELATONIN
  8. PLAVIX [Concomitant]
     Active Substance: CLOPIDOGREL BISULFATE
  9. CALCITRIOL. [Concomitant]
     Active Substance: CALCITRIOL
  10. COMBIVENT RESPIMAT [Concomitant]
     Active Substance: ALBUTEROL SULFATE\IPRATROPIUM BROMIDE
  11. DIALYVITE [Concomitant]
     Active Substance: ASCORBIC ACID\BIOTIN\CALCIUM PANTOTHENATE\COBALAMIN\FOLIC ACID\NIACINAMIDE\PYRIDOXINE HYDROCHLORIDE\RIBOFLAVIN\THIAMINE MONONITRATE
  12. LASIX [Concomitant]
     Active Substance: FUROSEMIDE
  13. LEVOTHYROXINE SODIUM. [Concomitant]
     Active Substance: LEVOTHYROXINE SODIUM
  14. LIPITOR [Concomitant]
     Active Substance: ATORVASTATIN CALCIUM
  15. OMEPRAZOLE. [Concomitant]
     Active Substance: OMEPRAZOLE
  16. PRAMIPEXOLE DIHYDROCHLORIDE. [Concomitant]
     Active Substance: PRAMIPEXOLE DIHYDROCHLORIDE
  17. PROMETHAZINE HCL [Concomitant]
     Active Substance: PROMETHAZINE HYDROCHLORIDE
  18. KLONOPIN [Concomitant]
     Active Substance: CLONAZEPAM
  19. SPIRIVA [Concomitant]
     Active Substance: TIOTROPIUM BROMIDE MONOHYDRATE
  20. VITAMIN D2 [Concomitant]
     Active Substance: ERGOCALCIFEROL
  21. AMLODIPINE W/ATORVASTATIN [Concomitant]
     Active Substance: AMLODIPINE\ATORVASTATIN
  22. LANTUS [Concomitant]
     Active Substance: INSULIN GLARGINE
  23. MIRAPEX [Concomitant]
     Active Substance: PRAMIPEXOLE DIHYDROCHLORIDE
  24. OXYCODONE HYDROCHLORIDE. [Concomitant]
     Active Substance: OXYCODONE HYDROCHLORIDE
  25. VELTASSA [Suspect]
     Active Substance: PATIROMER
     Indication: HYPERKALAEMIA
     Dosage: 8.4 G, FOUR TIMES/WEEK
     Route: 048
     Dates: start: 20160803
  26. MIRALAX [Concomitant]
     Active Substance: POLYETHYLENE GLYCOL 3350
  27. CITALOPRAM HYDROBROMIDE. [Concomitant]
     Active Substance: CITALOPRAM HYDROBROMIDE
  28. COREG [Concomitant]
     Active Substance: CARVEDILOL
  29. FORADIL [Concomitant]
     Active Substance: FORMOTEROL FUMARATE
  30. REGLAN [Concomitant]
     Active Substance: METOCLOPRAMIDE HYDROCHLORIDE

REACTIONS (2)
  - Hospitalisation [Not Recovered/Not Resolved]
  - Inappropriate schedule of drug administration [Not Recovered/Not Resolved]

NARRATIVE: CASE EVENT DATE: 20160803
